FAERS Safety Report 16699698 (Version 3)
Quarter: 2019Q4

REPORT INFORMATION
  Report Type: Spontaneous
  Country: JP (occurrence: JP)
  Receive Date: 20190813
  Receipt Date: 20191018
  Transmission Date: 20200122
  Serious: Yes (Hospitalization)
  Sender: FDA-Public Use
  Company Number: JP-ELI_LILLY_AND_COMPANY-JP201908003499

PATIENT
  Sex: Female
  Weight: 37 kg

DRUGS (16)
  1. DULOXETINE HYDROCHLORIDE. [Suspect]
     Active Substance: DULOXETINE HYDROCHLORIDE
     Indication: BACK PAIN
     Dosage: 20 MG, DAILY
     Route: 048
     Dates: start: 20190724, end: 20190729
  2. CALONAL [Concomitant]
     Active Substance: ACETAMINOPHEN
     Indication: BACK PAIN
     Dosage: 375 MG, QID
     Route: 048
     Dates: start: 20190521
  3. WINTERMIN [CHLORPROMAZINE HYDROCHLORIDE] [Suspect]
     Active Substance: CHLORPROMAZINE HYDROCHLORIDE
     Indication: CARDIOVASCULAR SOMATIC SYMPTOM DISORDER
     Dosage: 0.03 G, DAILY
     Route: 048
     Dates: start: 20160926
  4. PRIMPERAN [Concomitant]
     Active Substance: METOCLOPRAMIDE HYDROCHLORIDE
     Indication: NAUSEA
     Dosage: 5 MG, BID
     Route: 048
     Dates: start: 20150116, end: 20190806
  5. ETIZOLAM [Concomitant]
     Active Substance: ETIZOLAM
     Indication: BACK PAIN
     Dosage: 0.75 MG, DAILY
     Route: 048
     Dates: start: 20150306, end: 20190807
  6. ETIZOLAM [Concomitant]
     Active Substance: ETIZOLAM
     Indication: INSOMNIA
  7. MAGNESIUM SULFATE. [Concomitant]
     Active Substance: MAGNESIUM SULFATE
     Indication: CONSTIPATION
     Dosage: 7 MG, TID
     Route: 048
     Dates: start: 20130301, end: 20190808
  8. ZOLPIDEM TARTRATE. [Concomitant]
     Active Substance: ZOLPIDEM TARTRATE
     Indication: INSOMNIA
     Dosage: 5 MG, DAILY
     Route: 048
     Dates: start: 20180926
  9. AMITIZA [Suspect]
     Active Substance: LUBIPROSTONE
     Indication: CONSTIPATION
     Dosage: 24 UG, DAILY
     Route: 048
     Dates: start: 20190320, end: 20190729
  10. MERCAZOLE [THIAMAZOLE] [Concomitant]
     Active Substance: METHIMAZOLE
     Indication: HYPERTHYROIDISM
     Dosage: 1 MG, DAILY
     Route: 048
     Dates: start: 20070910
  11. BISOPROLOL [Concomitant]
     Active Substance: BISOPROLOL
     Indication: HYPERTENSION
     Dosage: 5 MG, DAILY
     Route: 048
     Dates: start: 20140526
  12. AMLODIPINE [Concomitant]
     Active Substance: AMLODIPINE BESYLATE
     Indication: HYPERTENSION
     Dosage: 2.5 MG, DAILY
     Route: 048
     Dates: start: 20161202
  13. REBAMIPIDE [Concomitant]
     Active Substance: REBAMIPIDE
     Indication: CHRONIC GASTRITIS
     Dosage: 100 MG, BID
     Route: 048
     Dates: start: 20180926, end: 20190807
  14. OSTELUC [Concomitant]
     Active Substance: ETODOLAC
     Indication: BACK PAIN
     Dosage: 100 MG, QID
     Route: 048
     Dates: start: 20190129
  15. BITTER TINCTURE [Concomitant]
     Indication: CONSTIPATION
     Dosage: 1 ML, TID
     Route: 048
     Dates: start: 20130301, end: 20190808
  16. SPIRONOLACTONE. [Concomitant]
     Active Substance: SPIRONOLACTONE
     Indication: HYPOKALAEMIA
     Dosage: 5 MG, DAILY
     Route: 048
     Dates: start: 20161129

REACTIONS (1)
  - Inappropriate antidiuretic hormone secretion [Recovered/Resolved]

NARRATIVE: CASE EVENT DATE: 20190726
